FAERS Safety Report 12177411 (Version 1)
Quarter: 2016Q1

REPORT INFORMATION
  Report Type: Spontaneous
  Country: AR (occurrence: AR)
  Receive Date: 20160314
  Receipt Date: 20160314
  Transmission Date: 20160526
  Serious: Yes (Other)
  Sender: FDA-Public Use
  Company Number: AR-PFIZER INC-2016147580

PATIENT
  Sex: Male

DRUGS (1)
  1. IBUPIRAC [Suspect]
     Active Substance: IBUPROFEN
     Dosage: 7.5 ML, UNK

REACTIONS (3)
  - Angioedema [Unknown]
  - Hypersensitivity [Unknown]
  - Swelling [Unknown]
